FAERS Safety Report 4714408-8 (Version None)
Quarter: 2005Q3

REPORT INFORMATION
  Report Type: 
  Country: None (occurrence: None)
  Receive Date: 20050714
  Receipt Date: 20050706
  Transmission Date: 20060218
  Serious: Yes (Hospitalization)
  Sender: FDA-Public Use
  Company Number: FR-GLAXOSMITHKLINE-B0387483A

PATIENT
  Age: 72 Year
  Sex: Male

DRUGS (8)
  1. AUGMENTIN '125' [Suspect]
     Indication: LUNG DISORDER
     Dosage: 3G PER DAY
     Route: 042
     Dates: start: 20050520, end: 20050527
  2. ACETAMINOPHEN [Suspect]
     Dosage: 3G PER DAY
     Route: 042
     Dates: start: 20050504, end: 20050527
  3. CORDARONE [Concomitant]
     Route: 048
     Dates: end: 20050527
  4. PREVISCAN [Concomitant]
     Route: 048
  5. METHYLPREDNISOLONE SODIUM SUCCINATE [Concomitant]
     Route: 042
     Dates: start: 20050521, end: 20050527
  6. PROZAC [Concomitant]
     Route: 048
     Dates: end: 20050527
  7. LASIX [Concomitant]
     Route: 065
  8. OMEPRAZOLE [Concomitant]
     Route: 065

REACTIONS (7)
  - ARRHYTHMIA [None]
  - CONFUSIONAL STATE [None]
  - CYTOLYTIC HEPATITIS [None]
  - HEPATOMEGALY [None]
  - INTERNATIONAL NORMALISED RATIO INCREASED [None]
  - OEDEMA PERIPHERAL [None]
  - PROTHROMBIN TIME RATIO ABNORMAL [None]
